FAERS Safety Report 16859090 (Version 2)
Quarter: 2020Q1

REPORT INFORMATION
  Report Type: Other
  Country: US (occurrence: US)
  Receive Date: 20190926
  Receipt Date: 20200325
  Transmission Date: 20200409
  Serious: No
  Sender: FDA-Public Use
  Company Number: US-VERASTEM-2019-00047

PATIENT

DRUGS (17)
  1. COPIKTRA [Suspect]
     Active Substance: DUVELISIB
     Dosage: 15 MG, QD (ALTERNATE DAYS FROM BID DOSE)
     Route: 048
     Dates: start: 20191112
  2. ACYCLOVIR. [Concomitant]
     Active Substance: ACYCLOVIR
     Dosage: 400 MG, QD
     Route: 048
  3. CULTURELLE [Concomitant]
     Active Substance: LACTOBACILLUS RHAMNOSUS
     Indication: PRODUCT USED FOR UNKNOWN INDICATION
     Dosage: 1 DF, QD
     Route: 048
     Dates: start: 20190326
  4. DAPSONE. [Concomitant]
     Active Substance: DAPSONE
     Indication: ANTIFUNGAL PROPHYLAXIS
     Dosage: 100 MG, QD
     Route: 048
     Dates: start: 20190731
  5. PRAVASTATIN. [Concomitant]
     Active Substance: PRAVASTATIN
     Indication: PRODUCT USED FOR UNKNOWN INDICATION
     Dosage: 40 MG, QD
     Route: 048
  6. PROCRIT [Concomitant]
     Active Substance: ERYTHROPOIETIN
     Indication: PRODUCT USED FOR UNKNOWN INDICATION
     Dosage: 30000 UNITS (10,000 UNITS/ML), QW
     Route: 058
     Dates: start: 20190717
  7. XARELTO [Concomitant]
     Active Substance: RIVAROXABAN
     Indication: PRODUCT USED FOR UNKNOWN INDICATION
     Dosage: 15 MG, QD
     Route: 048
  8. COPIKTRA [Suspect]
     Active Substance: DUVELISIB
     Indication: B-CELL LYMPHOMA
     Dosage: 15.0 MG, BID
     Route: 048
     Dates: start: 20190324, end: 20191112
  9. PROCRIT [Concomitant]
     Active Substance: ERYTHROPOIETIN
     Dosage: 20000 UNITS (20,000 UNITS/ML), Q 2 WEEKS
     Route: 058
     Dates: start: 20191001
  10. RITUXAN [Concomitant]
     Active Substance: RITUXIMAB
     Indication: B-CELL LYMPHOMA
     Dosage: UNK
     Dates: end: 20181003
  11. BENADRYL [Concomitant]
     Active Substance: DIPHENHYDRAMINE HYDROCHLORIDE
     Indication: INFUSION SITE EXTRAVASATION
     Dosage: UNK
     Dates: start: 201903
  12. ALPRAZOLAM. [Concomitant]
     Active Substance: ALPRAZOLAM
     Indication: PRODUCT USED FOR UNKNOWN INDICATION
     Dosage: 0.5 MG, PRN
     Route: 048
  13. COPIKTRA [Suspect]
     Active Substance: DUVELISIB
     Dosage: 15 MG, BID (ALTERNATE DAYS FROM QC DOSE)
     Route: 048
     Dates: start: 20191112
  14. ACYCLOVIR. [Concomitant]
     Active Substance: ACYCLOVIR
     Indication: PRODUCT USED FOR UNKNOWN INDICATION
     Dosage: 400 MG, BID
     Route: 048
     Dates: start: 20191014
  15. DOCUSATE SODIUM. [Concomitant]
     Active Substance: DOCUSATE SODIUM
     Indication: PRODUCT USED FOR UNKNOWN INDICATION
     Dosage: 250 MG, QD
     Route: 048
  16. LOSARTAN. [Concomitant]
     Active Substance: LOSARTAN
     Indication: PRODUCT USED FOR UNKNOWN INDICATION
     Dosage: 50 MG, QD
     Route: 048
  17. FERROUS SULFATE. [Concomitant]
     Active Substance: FERROUS SULFATE
     Indication: PRODUCT USED FOR UNKNOWN INDICATION
     Dosage: 45 MG, QD
     Route: 048

REACTIONS (9)
  - Inappropriate schedule of product administration [Not Recovered/Not Resolved]
  - Fatigue [Not Recovered/Not Resolved]
  - Headache [Unknown]
  - Nausea [Unknown]
  - Pruritus [Recovered/Resolved]
  - Prescribed underdose [Not Recovered/Not Resolved]
  - Constipation [Unknown]
  - Malaise [Not Recovered/Not Resolved]
  - Peripheral swelling [Not Recovered/Not Resolved]

NARRATIVE: CASE EVENT DATE: 2019
